FAERS Safety Report 7580732-7 (Version None)
Quarter: 2011Q2

REPORT INFORMATION
  Report Type: 
  Country: None (occurrence: None)
  Receive Date: 20110629
  Receipt Date: 20110617
  Transmission Date: 20111010
  Serious: Yes (Other)
  Sender: FDA-Public Use
  Company Number: US-JNJFOC-20110507182

PATIENT
  Sex: Female
  Weight: 64.41 kg

DRUGS (3)
  1. REMICADE [Suspect]
     Indication: PRODUCT USED FOR UNKNOWN INDICATION
     Route: 042
     Dates: start: 20040101
  2. REMICADE [Suspect]
     Route: 042
     Dates: start: 20090101
  3. METHOTREXATE [Concomitant]
     Dates: start: 20020101, end: 20090101

REACTIONS (1)
  - MULTIPLE MYELOMA [None]
